FAERS Safety Report 10080366 (Version 2)
Quarter: 2014Q2

REPORT INFORMATION
  Report Type: Spontaneous
  Country: US (occurrence: US)
  Receive Date: 20140415
  Receipt Date: 20140603
  Transmission Date: 20141212
  Serious: No
  Sender: FDA-Public Use
  Company Number: US-B.I. PHARMACEUTICALS,INC./RIDGEFIELD-2014-BI-15129BP

PATIENT
  Sex: Female
  Weight: 77 kg

DRUGS (8)
  1. PRADAXA [Suspect]
     Indication: THROMBOSIS
     Dosage: 300 MG
     Route: 048
     Dates: start: 2013
  2. PRADAXA [Suspect]
     Indication: DEEP VEIN THROMBOSIS
  3. NIACIN [Concomitant]
     Dosage: 500 MG
     Route: 048
  4. FENOFIBRATE [Concomitant]
     Indication: BLOOD CHOLESTEROL INCREASED
     Dosage: 134 MG
     Route: 048
  5. FENOFIBRATE [Concomitant]
     Indication: HYPERLIPIDAEMIA
  6. VITAMIN D [Concomitant]
     Dosage: 5000 U
     Route: 048
  7. TYLENOL [Concomitant]
     Indication: ARTHRITIS
     Route: 048
  8. OMEPRAZOLE [Concomitant]
     Indication: GASTROOESOPHAGEAL REFLUX DISEASE
     Route: 048

REACTIONS (2)
  - Dyspepsia [Not Recovered/Not Resolved]
  - Off label use [Unknown]
